FAERS Safety Report 15188049 (Version 2)
Quarter: 2018Q3

REPORT INFORMATION
  Report Type: Report from Study
  Country: None (occurrence: US)
  Receive Date: 20180724
  Receipt Date: 20180725
  Transmission Date: 20181010
  Serious: Yes (Other)
  Sender: FDA-Public Use
  Company Number: US-ABBVIE-18K-163-2384916-00

PATIENT
  Age: 38 Year
  Sex: Male
  Weight: 99.88 kg

DRUGS (6)
  1. HUMIRA [Suspect]
     Active Substance: ADALIMUMAB
     Route: 058
     Dates: start: 2018, end: 201806
  2. HUMIRA [Suspect]
     Active Substance: ADALIMUMAB
     Indication: COLITIS ULCERATIVE
     Route: 058
     Dates: start: 201702, end: 20180405
  3. CHOLESTYRAMINE. [Concomitant]
     Active Substance: CHOLESTYRAMINE
     Indication: INFREQUENT BOWEL MOVEMENTS
  4. LEVOFLOXACIN. [Concomitant]
     Active Substance: LEVOFLOXACIN
     Indication: STAPHYLOCOCCAL INFECTION
  5. DIAZIN [Concomitant]
     Indication: INFREQUENT BOWEL MOVEMENTS
  6. LISINOPRIL. [Concomitant]
     Active Substance: LISINOPRIL
     Indication: HYPERTENSION

REACTIONS (7)
  - Subcutaneous abscess [Recovered/Resolved]
  - Pruritus [Not Recovered/Not Resolved]
  - Meniscus injury [Recovered/Resolved]
  - Meniscus injury [Unknown]
  - Staphylococcal skin infection [Not Recovered/Not Resolved]
  - Subcutaneous abscess [Recovering/Resolving]
  - Impaired healing [Unknown]

NARRATIVE: CASE EVENT DATE: 20170913
